FAERS Safety Report 19589027 (Version 1)
Quarter: 2021Q3

REPORT INFORMATION
  Report Type: Spontaneous
  Country: US (occurrence: US)
  Receive Date: 20210721
  Receipt Date: 20210721
  Transmission Date: 20211014
  Serious: Yes (Hospitalization)
  Sender: FDA-Public Use
  Company Number: US-GW PHARMA-202107USGW03509

PATIENT

DRUGS (1)
  1. EPIDIOLEX [Suspect]
     Active Substance: CANNABIDIOL
     Indication: SEIZURE
     Dosage: 20.21 MG/KG/DAY, 220 MILLIGRAM, BID
     Dates: start: 20210623

REACTIONS (2)
  - Diarrhoea [Unknown]
  - Emergency care [Unknown]

NARRATIVE: CASE EVENT DATE: 2021
